FAERS Safety Report 22372675 (Version 2)
Quarter: 2023Q2

REPORT INFORMATION
  Report Type: Report from Study
  Country: FR (occurrence: None)
  Receive Date: 20230526
  Receipt Date: 20230602
  Transmission Date: 20230722
  Serious: Yes (Death)
  Sender: FDA-Public Use
  Company Number: FR-ROCHE-3356293

PATIENT
  Age: 76 Year
  Sex: Female
  Weight: 102 kg

DRUGS (16)
  1. TIRAGOLUMAB [Suspect]
     Active Substance: TIRAGOLUMAB
     Indication: Endometrial cancer metastatic
     Dosage: ON 05/MAY/2023, RECEIVED MOST RECENT DOSE 840 MG OF TIRAGOLUMAB PRIOR TO EVENT
     Route: 042
     Dates: start: 20210202
  2. TIRAGOLUMAB [Suspect]
     Active Substance: TIRAGOLUMAB
     Indication: Malignant peritoneal neoplasm
  3. ATEZOLIZUMAB [Suspect]
     Active Substance: ATEZOLIZUMAB
     Indication: Endometrial cancer metastatic
     Dosage: ON 05/MAY/2023, RECEIVED MOST RECENT DOSE 1680 MG OF ATEZOLIZUMAB PRIOR TO AE.
     Route: 041
     Dates: start: 20210202
  4. ATEZOLIZUMAB [Suspect]
     Active Substance: ATEZOLIZUMAB
     Indication: Malignant peritoneal neoplasm
  5. NEBIVOLOL [Concomitant]
     Active Substance: NEBIVOLOL
     Indication: Hypertension
     Route: 048
  6. NEBIVOLOL [Concomitant]
     Active Substance: NEBIVOLOL
     Indication: Atrial fibrillation
  7. DESLORATADINE [Concomitant]
     Active Substance: DESLORATADINE
     Indication: Pruritus
     Route: 048
     Dates: start: 20210331
  8. DESLORATADINE [Concomitant]
     Active Substance: DESLORATADINE
     Indication: Dry skin
  9. BETAMETHASONE [Concomitant]
     Active Substance: BETAMETHASONE
     Indication: Drug eruption
     Route: 061
     Dates: start: 20220211
  10. CREON [Concomitant]
     Active Substance: PANCRELIPASE AMYLASE\PANCRELIPASE LIPASE\PANCRELIPASE PROTEASE
     Indication: Pancreatic failure
     Dosage: 25000 U
     Route: 048
     Dates: start: 20230224
  11. CEFTRIAXONE [Concomitant]
     Active Substance: CEFTRIAXONE
     Indication: Fistula
     Route: 048
     Dates: start: 20230407, end: 20230414
  12. METRONIDAZOLE [Concomitant]
     Active Substance: METRONIDAZOLE
     Indication: Urinary tract infection
     Route: 048
     Dates: start: 20230407, end: 20230414
  13. PANTOPRAZOLE [Concomitant]
     Active Substance: PANTOPRAZOLE
     Indication: Urinary tract infection
     Route: 048
     Dates: start: 20230407, end: 20230422
  14. POTASSIUM CHLORIDE [Concomitant]
     Active Substance: POTASSIUM CHLORIDE
     Indication: Hyponatraemia
     Route: 048
     Dates: start: 20230407
  15. ECONAZOLE [Concomitant]
     Active Substance: ECONAZOLE
     Indication: Fungal infection
     Route: 061
     Dates: start: 20230407
  16. LEVOTHYROXINE [Concomitant]
     Active Substance: LEVOTHYROXINE
     Indication: Hypothyroidism
     Route: 048
     Dates: start: 20230407

REACTIONS (1)
  - Myocardial infarction [Fatal]

NARRATIVE: CASE EVENT DATE: 20230509
